FAERS Safety Report 6497420-0 (Version None)
Quarter: 2009Q4

REPORT INFORMATION
  Report Type: 
  Country: None (occurrence: None)
  Receive Date: 20091211
  Receipt Date: 20091201
  Transmission Date: 20100525
  Serious: Yes (Death, Life-Threatening, Hospitalization, Other)
  Sender: FDA-Public Use
  Company Number: 449101

PATIENT
  Age: 77 Year
  Sex: Male

DRUGS (2)
  1. (IRINOTECAN) [Suspect]
     Indication: COLORECTAL CANCER
  2. (BEVACIZUMAB) [Suspect]
     Indication: COLORECTAL CANCER

REACTIONS (11)
  - DIARRHOEA [None]
  - DISEASE PROGRESSION [None]
  - LIVER DISORDER [None]
  - MELAENA [None]
  - PERFORMANCE STATUS DECREASED [None]
  - PERIPHERAL CIRCULATORY FAILURE [None]
  - PNEUMOCYSTIS JIROVECI INFECTION [None]
  - RASH [None]
  - TUMOUR PERFORATION [None]
  - ULCER [None]
  - VOMITING [None]
